FAERS Safety Report 6893726-1 (Version None)
Quarter: 2010Q3

REPORT INFORMATION
  Report Type: 
  Country: None (occurrence: None)
  Receive Date: 20100802
  Receipt Date: 20100326
  Transmission Date: 20110219
  Serious: Yes (Death)
  Sender: FDA-Public Use
  Company Number: GB-RANBAXY-2008RR-15854

PATIENT
  Age: 3 Month
  Sex: Male
  Weight: 3.2 kg

DRUGS (11)
  1. ZIDOVUDINE [Suspect]
     Indication: ANTIVIRAL PROPHYLAXIS
     Dosage: UNK
     Route: 064
  2. ZIDOVUDINE [Suspect]
     Indication: HIV INFECTION
     Dosage: UNK
     Route: 064
  3. ZIDOVUDINE [Suspect]
     Route: 065
  4. LAMIVUDINE [Suspect]
     Indication: ANTIVIRAL PROPHYLAXIS
     Dosage: UNK
     Route: 065
  5. NEVIRAPINE [Suspect]
     Indication: ANTIVIRAL PROPHYLAXIS
     Dosage: UNK
     Route: 064
  6. NEVIRAPINE [Suspect]
     Indication: HIV INFECTION
     Dosage: UNK
  7. COMBIVIR [Suspect]
     Indication: HIV INFECTION
     Dosage: UNK
     Route: 064
  8. KALETRA [Suspect]
     Indication: HIV INFECTION
     Dosage: UNK
     Route: 064
  9. SEPTRIN [Suspect]
     Indication: PRODUCT USED FOR UNKNOWN INDICATION
     Dosage: UNK
     Route: 065
  10. VIRAMUNE [Suspect]
     Indication: HIV INFECTION
     Dosage: UNK
     Route: 064
  11. VIRAMUNE [Suspect]
     Indication: ANTIVIRAL PROPHYLAXIS
     Dosage: UNK
     Route: 064

REACTIONS (2)
  - DEATH NEONATAL [None]
  - DRUG EXPOSURE DURING PREGNANCY [None]
